FAERS Safety Report 9266535 (Version 1)
Quarter: 2013Q2

REPORT INFORMATION
  Report Type: Spontaneous
  Country: GB (occurrence: GB)
  Receive Date: 20130502
  Receipt Date: 20130502
  Transmission Date: 20140414
  Serious: Yes (Other)
  Sender: FDA-Public Use
  Company Number: GB-MICRO LABS LIMITED-BB2013-GB-00248

PATIENT
  Age: 55 Year
  Sex: Male

DRUGS (9)
  1. LOSARTAN [Suspect]
     Indication: BLOOD PRESSURE
     Route: 065
  2. SIMVASTATIN [Interacting]
     Indication: BLOOD CHOLESTEROL INCREASED
     Route: 048
     Dates: start: 20110613, end: 20120925
  3. AMLODIPINE [Interacting]
     Indication: HYPERTENSION
     Route: 048
     Dates: end: 20120711
  4. AMLODIPINE [Interacting]
     Route: 048
  5. LERCANIDIPINE [Suspect]
     Indication: BLOOD PRESSURE
     Route: 065
  6. RAMIPRIL [Suspect]
     Indication: HYPERTENSION
     Route: 048
     Dates: end: 20120711
  7. RAMIPRIL [Suspect]
     Route: 048
     Dates: end: 20120711
  8. RAMIPRIL [Suspect]
     Route: 048
  9. PRAVASTATIN [Suspect]
     Indication: PRODUCT USED FOR UNKNOWN INDICATION
     Route: 065
     Dates: end: 20121206

REACTIONS (15)
  - Dyspnoea [Unknown]
  - Osteoarthritis [Unknown]
  - Confusional state [Unknown]
  - Gait disturbance [Unknown]
  - Myalgia [Unknown]
  - Dysstasia [Unknown]
  - Blood pressure increased [Unknown]
  - Mental impairment [Unknown]
  - Cough [Unknown]
  - Depressed mood [Unknown]
  - Fatigue [Unknown]
  - Feeling abnormal [Unknown]
  - Nightmare [Unknown]
  - Drug interaction [Unknown]
  - Product quality issue [Unknown]
